FAERS Safety Report 11173743 (Version 2)
Quarter: 2015Q2

REPORT INFORMATION
  Report Type: Spontaneous
  Country: VE (occurrence: VE)
  Receive Date: 20150609
  Receipt Date: 20150626
  Transmission Date: 20150821
  Serious: Yes (Other)
  Sender: FDA-Public Use
  Company Number: PHHY2015VE067939

PATIENT
  Age: 40 Year
  Sex: Female

DRUGS (1)
  1. IMATINIB [Suspect]
     Active Substance: IMATINIB
     Indication: CHRONIC MYELOID LEUKAEMIA
     Dosage: 400 MG, QD
     Route: 048
     Dates: start: 20100802

REACTIONS (3)
  - Porphyria [Unknown]
  - Blood blister [Recovering/Resolving]
  - Skin depigmentation [Recovering/Resolving]

NARRATIVE: CASE EVENT DATE: 20141106
